FAERS Safety Report 6135534-5 (Version None)
Quarter: 2009Q1

REPORT INFORMATION
  Report Type: 
  Country: None (occurrence: None)
  Receive Date: 20090327
  Receipt Date: 20090320
  Transmission Date: 20090719
  Serious: Yes (Other)
  Sender: FDA-Public Use
  Company Number: B0566840A

PATIENT
  Sex: Male

DRUGS (8)
  1. TELZIR [Suspect]
     Indication: HIV INFECTION
     Route: 048
  2. RETROVIR [Suspect]
     Indication: HIV INFECTION
     Route: 048
  3. KALETRA [Suspect]
     Indication: HIV INFECTION
     Route: 065
  4. EMTRIVA [Suspect]
     Indication: HIV INFECTION
     Route: 048
  5. SUSTIVA [Suspect]
     Indication: HIV INFECTION
     Route: 065
  6. VIDEX [Suspect]
     Indication: HIV INFECTION
     Route: 048
  7. VIRAMUNE [Suspect]
     Indication: HIV INFECTION
     Route: 048
  8. FUZEON [Suspect]
     Indication: HIV INFECTION
     Route: 065

REACTIONS (5)
  - BONE DISORDER [None]
  - DRUG INTOLERANCE [None]
  - MITOCHONDRIAL TOXICITY [None]
  - MYOSITIS [None]
  - SKIN DISORDER [None]
